FAERS Safety Report 7244452-0 (Version None)
Quarter: 2011Q1

REPORT INFORMATION
  Report Type: 
  Country: None (occurrence: None)
  Receive Date: 20110125
  Receipt Date: 20110120
  Transmission Date: 20110831
  Serious: Yes (Death)
  Sender: FDA-Public Use
  Company Number: SK-PFIZER INC-2011012754

PATIENT
  Age: 69 Year
  Sex: Female
  Weight: 68 kg

DRUGS (9)
  1. TRITACE [Concomitant]
     Dosage: UNK
     Route: 048
     Dates: start: 20100611
  2. EPLERENONE [Suspect]
     Indication: CARDIAC FAILURE
     Dosage: 25 MG, 1X/DAY
     Route: 048
     Dates: start: 20101027, end: 20101122
  3. FURON [Concomitant]
     Dosage: UNK
     Route: 048
     Dates: start: 20000601
  4. EPLERENONE [Suspect]
     Dosage: 50 MG, 1X/DAY
     Route: 048
     Dates: start: 20101123
  5. CONCOR [Concomitant]
     Dosage: UNK
     Route: 048
     Dates: start: 20100406
  6. CAVINTON [Concomitant]
     Dosage: UNK
     Route: 048
     Dates: start: 20100921
  7. ATORVASTATIN CALCIUM [Concomitant]
     Dosage: UNK
     Route: 048
     Dates: start: 20080405
  8. MILURIT [Concomitant]
     Dosage: UNK
     Route: 048
     Dates: start: 20100327
  9. BETASERC [Concomitant]
     Dosage: UNK
     Route: 048
     Dates: start: 20100921

REACTIONS (1)
  - DEATH [None]
